FAERS Safety Report 5130806-5 (Version None)
Quarter: 2006Q4

REPORT INFORMATION
  Report Type: 
  Country: None (occurrence: None)
  Receive Date: 20061017
  Receipt Date: 20061017
  Transmission Date: 20070319
  Serious: Yes (Life-Threatening, Hospitalization)
  Sender: FDA-Public Use
  Company Number: None

PATIENT
  Age: 41 Year
  Sex: Male
  Weight: 87.5442 kg

DRUGS (3)
  1. REMICADE [Suspect]
     Indication: COLITIS
     Dosage: 500MG ONCE IV
     Route: 042
     Dates: start: 20060929
  2. REMICADE [Suspect]
     Indication: CROHN'S DISEASE
     Dosage: 500MG ONCE IV
     Route: 042
     Dates: start: 20060929
  3. REMICADE [Suspect]

REACTIONS (1)
  - DEEP VEIN THROMBOSIS [None]
